FAERS Safety Report 8250682-1 (Version None)
Quarter: 2012Q2

REPORT INFORMATION
  Report Type: 
  Country: None (occurrence: None)
  Receive Date: 20120402
  Receipt Date: 20120321
  Transmission Date: 20120825
  Serious: Yes (Hospitalization)
  Sender: FDA-Public Use
  Company Number: CH-PFIZER INC-2012070877

PATIENT
  Age: 70 Year
  Sex: Female
  Weight: 49 kg

DRUGS (22)
  1. ATORVASTATIN CALCIUM [Concomitant]
     Dosage: 40 MG, 1X/DAY
     Route: 048
     Dates: end: 20120117
  2. PANTOPRAZOLE [Concomitant]
     Dosage: 40 MG, 1X/DAY (1-0-0)
     Route: 048
  3. BISOPROLOL FUMARATE [Concomitant]
     Dosage: 1.25 MG, UNK
     Route: 048
     Dates: start: 20120104, end: 20120110
  4. ACETAMINOPHEN [Concomitant]
     Dosage: UNK
     Route: 048
     Dates: start: 20111229
  5. ALDACTONE [Suspect]
     Dosage: 25 MG, 1X/DAY (1-0-0)
     Route: 048
     Dates: end: 20120104
  6. PREDNISONE TAB [Concomitant]
     Dosage: 10 MG, 1X/DAY (1-0-0)
     Route: 048
     Dates: end: 20111222
  7. MOTILIUM [Concomitant]
     Dosage: 10 MG, AS NEEDED
     Route: 048
     Dates: start: 20111201
  8. RAMIPRIL [Suspect]
     Dosage: 2.5 MG, 1X/DAY (1-0-0)
     Route: 048
     Dates: end: 20120103
  9. MARCUMAR [Concomitant]
     Dosage: 1 DF, AS NEEDED
     Route: 048
  10. PREDNISONE TAB [Concomitant]
     Dosage: 5 MG, 1X/DAY (1-0-0)
     Route: 048
  11. CORDARONE [Concomitant]
     Dosage: 200 MG, ALTERNATE DAY (1-0-0)
     Route: 048
  12. TORSEMIDE [Suspect]
     Dosage: 10 MG, UNK
     Route: 048
     Dates: start: 20111224, end: 20120103
  13. BISOPROLOL FUMARATE [Concomitant]
     Dosage: 2.5 MG, UNK
     Route: 048
     Dates: start: 20120111
  14. AMOXICILLIN AND CLAVULANATE POTASSIUM [Concomitant]
     Indication: INFECTION
     Dosage: 2.2 G, SINGLE
     Route: 042
     Dates: start: 20111223, end: 20111223
  15. BISOPROLOL FUMARATE [Concomitant]
     Dosage: 5 MG, 1X/DAY (1-0-0)
     Route: 048
     Dates: end: 20120103
  16. ACETAMINOPHEN [Concomitant]
     Dosage: 500 MG, 4X/DAY (1-1-1-1)
     Route: 048
     Dates: end: 20111228
  17. CIPROFLOXACIN HCL [Suspect]
     Indication: INFECTION
     Dosage: 750 MG, 2X/DAY (1-0-1)
     Route: 048
     Dates: start: 20111223, end: 20120102
  18. CIPROFLOXACIN HCL [Suspect]
     Indication: KLEBSIELLA INFECTION
  19. PREDNISONE TAB [Concomitant]
     Dosage: 0.25 MG, 1X/DAY (1-0-0)
     Route: 048
     Dates: start: 20111223
  20. ROCALTROL [Concomitant]
     Dosage: 0.25 MG, 1X/DAY (1-0-0)
     Route: 048
  21. METFORMIN [Concomitant]
     Dosage: 500 MG, 2X/DAY (1-0-1)
     Route: 048
     Dates: start: 20111229, end: 20111231
  22. AMOXICILLIN AND CLAVULANATE POTASSIUM [Concomitant]
     Indication: KLEBSIELLA INFECTION

REACTIONS (3)
  - RENAL FAILURE ACUTE [None]
  - TUBULOINTERSTITIAL NEPHRITIS [None]
  - PROTEINURIA [None]
